FAERS Safety Report 6976101-0 (Version None)
Quarter: 2010Q3

REPORT INFORMATION
  Report Type: 
  Country: None (occurrence: None)
  Receive Date: 20100910
  Receipt Date: 20100906
  Transmission Date: 20110219
  Serious: Yes (Hospitalization, Disabling)
  Sender: FDA-Public Use
  Company Number: FR-PFIZER INC-2010104336

PATIENT
  Age: 90 Year
  Sex: Female

DRUGS (3)
  1. SOLU-MEDROL [Suspect]
     Indication: WEGENER'S GRANULOMATOSIS
     Dosage: 1 G, 1X/DAY
     Route: 042
     Dates: start: 20100703, end: 20100706
  2. ENDOXAN [Concomitant]
     Indication: WEGENER'S GRANULOMATOSIS
     Dosage: 350 MG, CYCLIC
     Route: 042
     Dates: start: 20100707, end: 20100707
  3. ENDOXAN [Concomitant]
     Dosage: 350 MG, CYCLIC
     Route: 042
     Dates: start: 20100721, end: 20100721

REACTIONS (1)
  - DEMENTIA [None]
